FAERS Safety Report 17852242 (Version 1)
Quarter: 2020Q2

REPORT INFORMATION
  Report Type: Report from Study
  Country: CA (occurrence: CA)
  Receive Date: 20200602
  Receipt Date: 20200602
  Transmission Date: 20200714
  Serious: Yes (Death, Hospitalization)
  Sender: FDA-Public Use
  Company Number: CA-TOLMAR, INC.-20CA021509

PATIENT
  Age: 80 Year
  Sex: Male

DRUGS (1)
  1. ELIGARD [Suspect]
     Active Substance: LEUPROLIDE ACETATE
     Indication: PROSTATE CANCER
     Dosage: 30 MG, Q 4 MONTH
     Route: 058
     Dates: start: 20200210

REACTIONS (5)
  - Prostate cancer [Fatal]
  - Dysstasia [Unknown]
  - Fatigue [Unknown]
  - Asthenia [Unknown]
  - Metastases to bone [Fatal]

NARRATIVE: CASE EVENT DATE: 202003
